FAERS Safety Report 17483685 (Version 1)
Quarter: 2020Q1

REPORT INFORMATION
  Report Type: Spontaneous
  Country: US (occurrence: US)
  Receive Date: 20200301
  Receipt Date: 20200301
  Transmission Date: 20200409
  Serious: Yes (Life-Threatening, Disabling, Other)
  Sender: FDA-Public Use
  Company Number: None

PATIENT
  Age: 68 Year
  Sex: Female
  Weight: 92.25 kg

DRUGS (2)
  1. OLMESARTAN MEDOXOMIL AND HYDROCHLOROTHIAZIDE TABLETS 40 MG/25 MH [Suspect]
     Active Substance: HYDROCHLOROTHIAZIDE\OLMESARTAN MEDOXOMIL
     Indication: BLOOD PRESSURE MEASUREMENT
     Dosage: ?          QUANTITY:30 TABLET(S);?
     Route: 048
     Dates: start: 20190902, end: 20200128
  2. LOSARTAN/HCTZ [Suspect]
     Active Substance: HYDROCHLOROTHIAZIDE\LOSARTAN

REACTIONS (7)
  - Glycosylated haemoglobin increased [None]
  - Recalled product [None]
  - Renal function test abnormal [None]
  - Pain [None]
  - Dehydration [None]
  - Weight increased [None]
  - Heart rate increased [None]

NARRATIVE: CASE EVENT DATE: 20190902
